FAERS Safety Report 17115226 (Version 2)
Quarter: 2019Q4

REPORT INFORMATION
  Report Type: Spontaneous
  Country: ES (occurrence: ES)
  Receive Date: 20191205
  Receipt Date: 20191219
  Transmission Date: 20200122
  Serious: Yes (Death)
  Sender: FDA-Public Use
  Company Number: ES-TEVA-2019-ES-1146630

PATIENT
  Age: 85 Year
  Sex: Female

DRUGS (2)
  1. DIGOXINA (770A) [Suspect]
     Active Substance: DIGOXIN
     Dosage: DIGOXINA (770A)
     Route: 040
     Dates: start: 20191027, end: 20191027
  2. BISOPROLOL (2328A) [Suspect]
     Active Substance: BISOPROLOL
     Dosage: 2.5 MG PER 12 HRS
     Route: 048
     Dates: start: 20191026, end: 20191027

REACTIONS (3)
  - Toxicity to various agents [Fatal]
  - Ventricular arrhythmia [Fatal]
  - Cardio-respiratory arrest [Fatal]

NARRATIVE: CASE EVENT DATE: 20191026
